FAERS Safety Report 12713186 (Version 1)
Quarter: 2016Q3

REPORT INFORMATION
  Report Type: Spontaneous
  Country: CN (occurrence: CN)
  Receive Date: 20160902
  Receipt Date: 20160902
  Transmission Date: 20161109
  Serious: Yes (Hospitalization, Other)
  Sender: FDA-Public Use
  Company Number: CN-GILEAD-2016-0231713

PATIENT
  Age: 52 Year
  Sex: Male

DRUGS (2)
  1. HEPSERA [Suspect]
     Active Substance: ADEFOVIR DIPIVOXIL
     Indication: HEPATITIS B
     Dosage: 10 MG, QD
     Route: 065
     Dates: start: 2008
  2. LAMIVUDINE. [Concomitant]
     Active Substance: LAMIVUDINE
     Indication: HEPATITIS B
     Dosage: UNK
     Dates: start: 2006

REACTIONS (11)
  - Renal tubular dysfunction [Unknown]
  - Bone metabolism disorder [Unknown]
  - Protein urine present [Recovered/Resolved]
  - Osteoporosis [Unknown]
  - Musculoskeletal pain [Recovering/Resolving]
  - Fanconi syndrome acquired [Unknown]
  - Skeletal injury [Unknown]
  - Blood phosphorus decreased [Unknown]
  - Osteomalacia [Unknown]
  - Bone density increased [Unknown]
  - Glucose urine present [Recovered/Resolved]
